FAERS Safety Report 26014249 (Version 2)
Quarter: 2025Q4

REPORT INFORMATION
  Report Type: Spontaneous
  Country: US (occurrence: US)
  Receive Date: 20251108
  Receipt Date: 20251112
  Transmission Date: 20260118
  Serious: No
  Sender: SANOFI AVENTIS
  Company Number: US-SANOFI-02705748

PATIENT
  Age: 81 Year
  Sex: Female

DRUGS (1)
  1. LANTUS SOLOSTAR [Suspect]
     Active Substance: INSULIN GLARGINE
     Indication: Type 2 diabetes mellitus
     Dosage: 35 TO 40 UNITS DEPENDING ON HER MEAL AND SUGAR LEVEL, QD
     Dates: start: 2023

REACTIONS (4)
  - Blood glucose increased [Unknown]
  - Incorrect dose administered by device [Unknown]
  - Device mechanical issue [Unknown]
  - Wrong technique in device usage process [Unknown]

NARRATIVE: CASE EVENT DATE: 20251028
